FAERS Safety Report 5056099-5 (Version None)
Quarter: 2006Q3

REPORT INFORMATION
  Report Type: 
  Country: None (occurrence: None)
  Receive Date: 20060717
  Receipt Date: 20060707
  Transmission Date: 20061208
  Serious: Yes (Hospitalization)
  Sender: FDA-Public Use
  Company Number: 2006P1000349

PATIENT
  Age: 72 Year
  Weight: 77 kg

DRUGS (3)
  1. RETEPLASE (RETEPLASE) [Suspect]
     Indication: ACUTE MYOCARDIAL INFARCTION
     Dosage: 5 IU;X2;IV
     Dates: start: 20060319
  2. REOPRO [Suspect]
     Indication: ACUTE MYOCARDIAL INFARCTION
     Dosage: 9.6 ML;X1;IVBOL; SEE IMAGE
     Route: 040
     Dates: start: 20060319, end: 20060319
  3. HEPARIN [Concomitant]

REACTIONS (4)
  - ARRHYTHMIA [None]
  - BLOOD PRESSURE SYSTOLIC INCREASED [None]
  - CORONARY ARTERY THROMBOSIS [None]
  - PALPITATIONS [None]
